FAERS Safety Report 12407113 (Version 1)
Quarter: 2016Q2

REPORT INFORMATION
  Report Type: Spontaneous
  Country: US (occurrence: US)
  Receive Date: 20160526
  Receipt Date: 20160526
  Transmission Date: 20160815
  Serious: No
  Sender: FDA-Public Use
  Company Number: US-PFIZER INC-2016253631

PATIENT
  Age: 67 Year
  Sex: Female
  Weight: 59.87 kg

DRUGS (2)
  1. ESTRING [Suspect]
     Active Substance: ESTRADIOL
     Indication: VULVOVAGINAL DRYNESS
  2. ESTRING [Suspect]
     Active Substance: ESTRADIOL
     Indication: STRESS URINARY INCONTINENCE
     Dosage: ONE RING PLACED VAGINALLY EVERY 90 DAYS
     Route: 067
     Dates: end: 20160331

REACTIONS (2)
  - Product quality issue [Recovered/Resolved]
  - Vulvovaginal adhesion [Recovered/Resolved]

NARRATIVE: CASE EVENT DATE: 20160331
